FAERS Safety Report 17755648 (Version 1)
Quarter: 2020Q2

REPORT INFORMATION
  Report Type: Spontaneous
  Country: US (occurrence: US)
  Receive Date: 20200506
  Receipt Date: 20200506
  Transmission Date: 20200714
  Serious: Yes (Other)
  Sender: FDA-Public Use
  Company Number: None

PATIENT
  Age: 57 Year
  Sex: Male
  Weight: 113.4 kg

DRUGS (9)
  1. KETOROLAC (ACULAR) 0.5% [Concomitant]
  2. OMEGA-3 FATTY ACIDS (FISH OIL) [Concomitant]
  3. FLUTICASONE (FLONASE) [Concomitant]
  4. AMLODIPINE [Suspect]
     Active Substance: AMLODIPINE BESYLATE
  5. ASPIRIN 81 [Concomitant]
     Active Substance: ASPIRIN
  6. HYDRALAZINE (APRESOLINE) [Concomitant]
  7. MUPIROCIN (BACTROBAN) 2% [Concomitant]
  8. DILTIAZEM (DILACOR XR) [Concomitant]
  9. LISINOPRIL. [Concomitant]
     Active Substance: LISINOPRIL

REACTIONS (6)
  - Tachycardia [None]
  - Arthralgia [None]
  - Somnolence [None]
  - Erectile dysfunction [None]
  - Product substitution issue [None]
  - Drug ineffective [None]

NARRATIVE: CASE EVENT DATE: 20140508
